FAERS Safety Report 8450074-6 (Version None)
Quarter: 2012Q2

REPORT INFORMATION
  Report Type: 
  Country: None (occurrence: None)
  Receive Date: 20120614
  Receipt Date: 20120614
  Transmission Date: 20120825
  Serious: No
  Sender: FDA-Public Use
  Company Number: None

PATIENT
  Age: 16 Year
  Sex: Female

DRUGS (1)
  1. GEODON [Suspect]
     Indication: BIPOLAR DISORDER
     Dosage: 40MG ONE AT NIGHT PO
     Route: 048

REACTIONS (4)
  - PRODUCT SUBSTITUTION ISSUE [None]
  - MOOD ALTERED [None]
  - IRRITABILITY [None]
  - AGGRESSION [None]
